FAERS Safety Report 5598290-5 (Version None)
Quarter: 2008Q1

REPORT INFORMATION
  Report Type: 
  Country: None (occurrence: None)
  Receive Date: 20080122
  Receipt Date: 20080114
  Transmission Date: 20080703
  Serious: Yes (Hospitalization, Other)
  Sender: FDA-Public Use
  Company Number: FR-AVENTIS-200810221FR

PATIENT
  Age: 14 Day
  Sex: Female

DRUGS (4)
  1. LASILIX                            /00032601/ [Suspect]
     Route: 042
     Dates: start: 20071108, end: 20071114
  2. LOPRIL                             /00498401/ [Suspect]
     Route: 042
     Dates: start: 20071116, end: 20071119
  3. LOPRIL                             /00498401/ [Suspect]
     Route: 042
     Dates: start: 20071116, end: 20071119
  4. LOXEN [Concomitant]
     Dates: start: 20071108

REACTIONS (1)
  - ACUTE PULMONARY OEDEMA [None]
